FAERS Safety Report 18980052 (Version 1)
Quarter: 2021Q1

REPORT INFORMATION
  Report Type: Spontaneous
  Country: US (occurrence: US)
  Receive Date: 20210308
  Receipt Date: 20210308
  Transmission Date: 20210420
  Serious: No
  Sender: FDA-Public Use
  Company Number: US-APOTEX-2020AP018176

PATIENT
  Age: 50 Year
  Sex: Female

DRUGS (2)
  1. TRANEXAMIC ACID. [Suspect]
     Active Substance: TRANEXAMIC ACID
     Indication: MENORRHAGIA
     Dosage: 1300 MILLIGRAM, TID
     Route: 048
  2. DESMOPRESSIN [Suspect]
     Active Substance: DESMOPRESSIN
     Indication: FACTOR VIII DEFICIENCY
     Dosage: UNK
     Route: 065

REACTIONS (3)
  - Therapeutic product effect incomplete [Unknown]
  - Nausea [Unknown]
  - Rash erythematous [Unknown]
